FAERS Safety Report 14804490 (Version 1)
Quarter: 2018Q2

REPORT INFORMATION
  Report Type: Spontaneous
  Country: FR (occurrence: FR)
  Receive Date: 20180425
  Receipt Date: 20180425
  Transmission Date: 20180711
  Serious: Yes (Other)
  Sender: FDA-Public Use
  Company Number: FR-MERCK KGAA-2046438

PATIENT
  Sex: Male

DRUGS (1)
  1. NOVOTHYROX [Suspect]
     Active Substance: LEVOTHYROXINE SODIUM
     Indication: PRODUCT USED FOR UNKNOWN INDICATION

REACTIONS (18)
  - Joint injury [Not Recovered/Not Resolved]
  - Alopecia [None]
  - Skin disorder [None]
  - Pruritus [None]
  - Weight increased [None]
  - Irritability [None]
  - Gait disturbance [Not Recovered/Not Resolved]
  - Onychoclasis [None]
  - Impaired healing [None]
  - Vertigo [None]
  - Malaise [None]
  - Tension [None]
  - Balance disorder [Not Recovered/Not Resolved]
  - Dizziness [None]
  - Fatigue [None]
  - Sleep disorder [None]
  - Muscle tone disorder [None]
  - Loss of personal independence in daily activities [None]

NARRATIVE: CASE EVENT DATE: 201704
